FAERS Safety Report 7949197-7 (Version None)
Quarter: 2011Q4

REPORT INFORMATION
  Report Type: 
  Country: None (occurrence: None)
  Receive Date: 20111130
  Receipt Date: 20111122
  Transmission Date: 20120403
  Serious: Yes (Death, Life-Threatening, Hospitalization)
  Sender: FDA-Public Use
  Company Number: US-MPIJNJ-2011-05127

PATIENT
  Sex: Male
  Weight: 77.551 kg

DRUGS (6)
  1. LENALIDOMIDE [Suspect]
     Indication: MANTLE CELL LYMPHOMA
     Dosage: 10 MG, CYCLIC
     Route: 048
     Dates: start: 20110822, end: 20110914
  2. VELCADE [Suspect]
     Indication: MANTLE CELL LYMPHOMA
     Dosage: 2.5 MG, CYCLIC
     Route: 042
     Dates: start: 20110822, end: 20110923
  3. ALLOPURINOL [Concomitant]
     Indication: TUMOUR LYSIS SYNDROME
     Dosage: 300 MG, UNK
     Dates: start: 20110822
  4. ATENOLOL [Concomitant]
     Indication: HYPERTENSION
  5. KEFLEX [Concomitant]
     Indication: INFECTION
     Dosage: 500 MG, BID
     Dates: start: 20111014
  6. RITUXIMAB [Suspect]
     Indication: MANTLE CELL LYMPHOMA
     Dosage: 716 MG, CYCLIC
     Route: 042
     Dates: start: 20110822, end: 20110912

REACTIONS (1)
  - HERPES ZOSTER DISSEMINATED [None]
